FAERS Safety Report 12839968 (Version 2)
Quarter: 2016Q4

REPORT INFORMATION
  Report Type: Spontaneous
  Country: FR (occurrence: FR)
  Receive Date: 20161012
  Receipt Date: 20161107
  Transmission Date: 20170207
  Serious: Yes (Other)
  Sender: FDA-Public Use
  Company Number: FR-FRESENIUS KABI-FK201607622

PATIENT
  Age: 2 Year
  Sex: Male
  Weight: 15.6 kg

DRUGS (7)
  1. PARACETAMOL [Concomitant]
     Active Substance: ACETAMINOPHEN
  2. SMOFLIPID [Suspect]
     Active Substance: FISH OIL\MEDIUM-CHAIN TRIGLYCERIDES\OLIVE OIL\SOYBEAN OIL
     Indication: PARENTERAL NUTRITION
     Route: 041
     Dates: start: 20160724, end: 20160727
  3. PEDIAVEN G25 [Suspect]
     Active Substance: AMINO ACIDS\DEXTROSE\ELECTROLYTES NOS
     Indication: PARENTERAL NUTRITION
     Route: 041
     Dates: start: 20160724, end: 20160727
  4. CERNEVIT [Suspect]
     Active Substance: VITAMINS
     Indication: PARENTERAL NUTRITION
     Route: 041
     Dates: start: 20160722
  5. GARDENAL [Concomitant]
     Active Substance: PHENOBARBITAL
  6. INEXIUM [Concomitant]
     Active Substance: ESOMEPRAZOLE
  7. VALIUM [Concomitant]
     Active Substance: DIAZEPAM

REACTIONS (2)
  - Cholestasis [Unknown]
  - Hepatocellular injury [Recovering/Resolving]

NARRATIVE: CASE EVENT DATE: 20160727
